FAERS Safety Report 7493160-X (Version None)
Quarter: 2011Q2

REPORT INFORMATION
  Report Type: 
  Country: None (occurrence: None)
  Receive Date: 20110519
  Receipt Date: 20110519
  Transmission Date: 20111010
  Serious: Yes (Hospitalization)
  Sender: FDA-Public Use
  Company Number: None

PATIENT
  Sex: Male
  Weight: 92.4 kg

DRUGS (6)
  1. TAMSULOSIN HCL [Concomitant]
  2. ATORVASTATIN [Concomitant]
  3. CELECOXIB [Suspect]
     Indication: ARTHRALGIA
     Dosage: 200MG UNKNOWN PO
     Route: 048
     Dates: start: 20100402, end: 20100502
  4. PREDNISONE [Suspect]
     Indication: ARTHRALGIA
     Dosage: 20MG PO
     Route: 048
     Dates: start: 20100402, end: 20100502
  5. NEXIUM [Concomitant]
  6. METFORMIN HCL [Concomitant]

REACTIONS (5)
  - FAECES DISCOLOURED [None]
  - HAEMOGLOBIN DECREASED [None]
  - HAEMATOCRIT DECREASED [None]
  - ASTHENIA [None]
  - FATIGUE [None]
